FAERS Safety Report 6768396 (Version 4)
Quarter: 2013Q2

REPORT INFORMATION
  Report Type: Spontaneous
  Country: US (occurrence: US)
  Receive Date: 20080924
  Receipt Date: 20130415
  Transmission Date: 20140414
  Serious: Yes (Life-Threatening, Hospitalization, Other)
  Sender: FDA-Public Use
  Company Number: US-ASTRAZENECA-2008UW14263

PATIENT
  Age: 49 Year
  Sex: Female
  Weight: 95.3 kg

DRUGS (15)
  1. SEROQUEL [Suspect]
     Indication: BIPOLAR DISORDER
     Route: 048
     Dates: start: 2004, end: 20051230
  2. SEROQUEL [Interacting]
     Indication: BIPOLAR DISORDER
     Route: 048
  3. PRILOSEC OTC [Suspect]
     Route: 048
  4. MULTI DRUG [Interacting]
     Route: 065
  5. FUROSEMIDE [Suspect]
     Route: 065
  6. MECLIZINE [Concomitant]
     Dosage: 25 MG ONE TO TWO TWICE DAILY
     Route: 048
  7. UNSPECIFIED INGREDIENT [Concomitant]
  8. NASONEX [Concomitant]
  9. LORAZEPAM [Concomitant]
     Dosage: 25 MG ONCE TO TWICE AILY
     Route: 048
  10. POTASSIUM [Concomitant]
  11. ERYTHROMYCIN [Concomitant]
  12. Z-PACK [Concomitant]
  13. PROMETHEZINE [Concomitant]
     Route: 048
  14. NUMEROUS MEDICATIONS [Concomitant]
  15. HYDROCORTISONE [Concomitant]

REACTIONS (7)
  - Drug interaction [Unknown]
  - Coma [Unknown]
  - Grand mal convulsion [Unknown]
  - Pain [Unknown]
  - Paraesthesia [Unknown]
  - Vertigo [Unknown]
  - Weight increased [Unknown]
